FAERS Safety Report 7560952-8 (Version None)
Quarter: 2011Q2

REPORT INFORMATION
  Report Type: 
  Country: None (occurrence: None)
  Receive Date: 20110621
  Receipt Date: 20110607
  Transmission Date: 20111010
  Serious: Yes (Other)
  Sender: FDA-Public Use
  Company Number: IE-JNJFOC-20110303819

PATIENT
  Sex: Male

DRUGS (3)
  1. PREDNISOLONE [Concomitant]
  2. METHOTREXATE [Concomitant]
  3. REMICADE [Suspect]
     Indication: SERONEGATIVE ARTHRITIS
     Dosage: MAINTENANCE TREATMENT X 10 YEARS
     Route: 042

REACTIONS (2)
  - HERPES ZOSTER [None]
  - HERPES ZOSTER OPHTHALMIC [None]
